FAERS Safety Report 15558737 (Version 2)
Quarter: 2018Q4

REPORT INFORMATION
  Report Type: Report from Study
  Country: None (occurrence: US)
  Receive Date: 20181029
  Receipt Date: 20181112
  Transmission Date: 20190205
  Serious: Yes (Hospitalization, Other)
  Sender: FDA-Public Use
  Company Number: US-ABBVIE-18K-163-2477345-00

PATIENT
  Age: 63 Year
  Sex: Female
  Weight: 64.92 kg

DRUGS (2)
  1. HUMIRA [Suspect]
     Active Substance: ADALIMUMAB
     Indication: PSORIASIS
     Route: 058
  2. HUMIRA [Suspect]
     Active Substance: ADALIMUMAB
     Indication: PSORIASIS

REACTIONS (7)
  - Rash macular [Unknown]
  - Injection site bruising [Unknown]
  - Skin discolouration [Recovered/Resolved]
  - Basal cell carcinoma [Recovering/Resolving]
  - Nodule [Recovered/Resolved]
  - Post procedural haemorrhage [Unknown]
  - Surgical failure [Unknown]
